FAERS Safety Report 21043397 (Version 1)
Quarter: 2022Q3

REPORT INFORMATION
  Report Type: Spontaneous
  Country: CN (occurrence: CN)
  Receive Date: 20220705
  Receipt Date: 20220705
  Transmission Date: 20221026
  Serious: Yes (Hospitalization)
  Sender: FDA-Public Use
  Company Number: CN-PFIZER INC-PV202200013337

PATIENT
  Age: 27 Year
  Sex: Male
  Weight: 65 kg

DRUGS (4)
  1. CELEBREX [Suspect]
     Active Substance: CELECOXIB
     Indication: Analgesic therapy
     Dosage: 1 DF, 1X/DAY
     Route: 048
     Dates: start: 20200718, end: 20200723
  2. DICLOFENAC SODIUM [Suspect]
     Active Substance: DICLOFENAC SODIUM
     Indication: Analgesic therapy
     Dosage: 1 DF, 1X/DAY (ANUS PLUG)
     Route: 054
     Dates: start: 20200717, end: 20200718
  3. DICLOFENAC SODIUM [Suspect]
     Active Substance: DICLOFENAC SODIUM
     Dosage: 1 DF, 1X/DAY
     Route: 054
     Dates: start: 20200720, end: 20200721
  4. ACETAMINOPHEN\DIHYDROCODEINE BITARTRATE [Suspect]
     Active Substance: ACETAMINOPHEN\DIHYDROCODEINE BITARTRATE
     Indication: Analgesic therapy
     Dosage: 1 DF, 3X/DAY
     Route: 048
     Dates: start: 20200720, end: 20200726

REACTIONS (3)
  - Liver injury [Recovering/Resolving]
  - Hepatitis B [Recovering/Resolving]
  - Hepatitis C [Recovering/Resolving]

NARRATIVE: CASE EVENT DATE: 20200722
